FAERS Safety Report 18661983 (Version 2)
Quarter: 2020Q4

REPORT INFORMATION
  Report Type: Report from Study
  Country: ES (occurrence: ES)
  Receive Date: 20201224
  Receipt Date: 20201225
  Transmission Date: 20210114
  Serious: Yes (Hospitalization)
  Sender: FDA-Public Use
  Company Number: ES-SHIRE-ES202023711

PATIENT
  Age: 5 Year
  Sex: Male

DRUGS (15)
  1. TAUROLIDINA [Concomitant]
     Indication: INFECTION PROPHYLAXIS
     Dosage: 1 MILLILITER
     Route: 050
     Dates: start: 20150601
  2. CLEXANE [Concomitant]
     Active Substance: ENOXAPARIN SODIUM
     Indication: PROPHYLAXIS
     Dosage: 1 MILLIGRAM/KILOGRAM, BID
     Route: 058
     Dates: start: 20161207, end: 20200528
  3. KONAKION [Concomitant]
     Active Substance: PHYTONADIONE
     Indication: COAGULOPATHY
     Dosage: 2 MILLIGRAM, QD
     Route: 048
     Dates: start: 20181018, end: 20200519
  4. COLECALCIFEROL [Concomitant]
     Active Substance: CHOLECALCIFEROL
     Indication: VITAMIN D DEFICIENCY
     Dosage: 1200 INTERNATIONAL UNIT, QD
     Route: 048
     Dates: start: 20180702
  5. CALCIUM CARBONATE. [Concomitant]
     Active Substance: CALCIUM CARBONATE
     Indication: OSTEOPENIA
     Dosage: 1500 MILLIGRAM, QD
     Route: 048
     Dates: start: 20180402
  6. TEDUGLUTIDE [Suspect]
     Active Substance: TEDUGLUTIDE
     Indication: SHORT-BOWEL SYNDROME
     Dosage: 0.06 MILLILITER, 1X/DAY:QD
     Route: 058
     Dates: start: 20170820
  7. TEDUGLUTIDE [Suspect]
     Active Substance: TEDUGLUTIDE
     Indication: SHORT-BOWEL SYNDROME
     Dosage: 0.06 MILLILITER, 1X/DAY:QD
     Route: 058
     Dates: start: 20170820
  8. LOPERAMIDE [Concomitant]
     Active Substance: LOPERAMIDE
     Indication: DIARRHOEA
     Dosage: 1 MILLIGRAM
     Route: 048
     Dates: start: 20150108
  9. PIMECROLIMUS. [Concomitant]
     Active Substance: PIMECROLIMUS
     Indication: DERMATITIS
     Dosage: 1 GRAM, QD
     Route: 061
     Dates: start: 20190805
  10. FERROUS SULFATE. [Concomitant]
     Active Substance: FERROUS SULFATE
     Indication: ANAEMIA
     Dosage: 5 MILLIGRAM/KILOGRAM, QD
     Route: 048
     Dates: start: 20191010, end: 20200519
  11. TEDUGLUTIDE [Suspect]
     Active Substance: TEDUGLUTIDE
     Indication: SHORT-BOWEL SYNDROME
     Dosage: 0.06 MILLILITER, 1X/DAY:QD
     Route: 058
     Dates: start: 20170820
  12. TEDUGLUTIDE [Suspect]
     Active Substance: TEDUGLUTIDE
     Indication: SHORT-BOWEL SYNDROME
     Dosage: 0.06 MILLILITER, 1X/DAY:QD
     Route: 058
     Dates: start: 20170820
  13. URSOCHOL [Concomitant]
     Active Substance: URSODIOL
     Indication: BLOOD BILIRUBIN INCREASED
     Dosage: 150 MILLIGRAM, TID
     Route: 048
     Dates: start: 20201023
  14. FLUTICASON [Concomitant]
     Active Substance: FLUTICASONE
     Indication: RHINITIS
     Dosage: 27.5 MICROGRAM, QD
     Route: 050
     Dates: start: 20200928
  15. TINZAPARINA DE SODIO [Concomitant]
     Active Substance: TINZAPARIN SODIUM
     Indication: VENOUS THROMBOSIS
     Dosage: 2500 INTERNATIONAL UNIT, QD
     Route: 058
     Dates: start: 20200528

REACTIONS (1)
  - Gastrointestinal inflammation [Recovered/Resolved]

NARRATIVE: CASE EVENT DATE: 20200125
